FAERS Safety Report 5521790-0 (Version None)
Quarter: 2007Q4

REPORT INFORMATION
  Report Type: 
  Country: None (occurrence: None)
  Receive Date: 20071120
  Receipt Date: 20071109
  Transmission Date: 20080405
  Serious: Yes (Hospitalization)
  Sender: FDA-Public Use
  Company Number: FI-NOVOPROD-266925

PATIENT
  Age: 74 Year
  Sex: Male
  Weight: 83 kg

DRUGS (9)
  1. NOVOLOG MIX 70/30 [Suspect]
     Indication: INSULIN-REQUIRING TYPE II DIABETES MELLITUS
     Dosage: 14 IU, QD
     Route: 058
     Dates: start: 20070410
  2. PARACETAMOL [Concomitant]
     Dosage: 500 MG, TID
     Route: 048
  3. STALEVO 100 [Concomitant]
     Dosage: 10/25/200
     Dates: start: 20070715
  4. FURESIS COMP [Concomitant]
     Dosage: 1 X 2
     Route: 048
     Dates: start: 20070424
  5. ISMOX [Concomitant]
     Dosage: 2 + 1
     Route: 048
     Dates: start: 20061001
  6. CITALOPRAM [Concomitant]
     Dosage: 10 MG, 1X1
     Dates: start: 20061001
  7. LEPONEX [Concomitant]
     Dosage: 0,5 + 1
     Dates: start: 20060509
  8. PLAVIX [Concomitant]
     Dosage: 1 X 1
     Route: 048
     Dates: start: 20050629
  9. DIFORMIN [Concomitant]
     Dosage: 2 X 2
     Route: 048
     Dates: start: 20050519

REACTIONS (2)
  - BLOOD GLUCOSE DECREASED [None]
  - BRONCHITIS [None]
